FAERS Safety Report 11780182 (Version 1)
Quarter: 2015Q4

REPORT INFORMATION
  Report Type: Spontaneous
  Country: US (occurrence: US)
  Receive Date: 20151126
  Receipt Date: 20151126
  Transmission Date: 20160305
  Serious: No
  Sender: FDA-Public Use
  Company Number: US-JNJFOC-20150926231

PATIENT
  Age: 64 Year
  Sex: Female
  Weight: 80.74 kg

DRUGS (3)
  1. TYLENOL ARTHRITIS PAIN [Suspect]
     Active Substance: ACETAMINOPHEN
     Route: 048
  2. TYLENOL ARTHRITIS PAIN [Suspect]
     Active Substance: ACETAMINOPHEN
     Indication: INTERVERTEBRAL DISC DEGENERATION
     Route: 048
  3. MAXZIDE [Concomitant]
     Active Substance: HYDROCHLOROTHIAZIDE\TRIAMTERENE
     Indication: HYDROCEPHALUS
     Dosage: 75-50MG
     Route: 065

REACTIONS (3)
  - Therapeutic response unexpected [Unknown]
  - Expired product administered [Unknown]
  - Product use issue [Unknown]
